FAERS Safety Report 11590703 (Version 3)
Quarter: 2016Q4

REPORT INFORMATION
  Report Type: Spontaneous
  Country: SK (occurrence: SK)
  Receive Date: 20151002
  Receipt Date: 20161128
  Transmission Date: 20170206
  Serious: Yes (Death, Other)
  Sender: FDA-Public Use
  Company Number: SK-PFIZER INC-2013150550

PATIENT
  Age: 7 Decade
  Sex: Male

DRUGS (1)
  1. AXITINIB [Suspect]
     Active Substance: AXITINIB
     Indication: METASTATIC RENAL CELL CARCINOMA
     Dosage: 5 MG, 2X/DAY
     Dates: start: 201303, end: 201404

REACTIONS (7)
  - Upper gastrointestinal haemorrhage [Unknown]
  - Blood thyroid stimulating hormone increased [Unknown]
  - Disease progression [Fatal]
  - Hydronephrosis [Unknown]
  - Dysphonia [Unknown]
  - Metastatic renal cell carcinoma [Fatal]
  - Postrenal failure [Unknown]

NARRATIVE: CASE EVENT DATE: 201404
